FAERS Safety Report 14767548 (Version 5)
Quarter: 2019Q4

REPORT INFORMATION
  Report Type: Spontaneous
  Country: US (occurrence: US)
  Receive Date: 20180417
  Receipt Date: 20191217
  Transmission Date: 20200122
  Serious: No
  Sender: FDA-Public Use
  Company Number: US-PFIZER INC-2018155317

PATIENT
  Age: 77 Year
  Sex: Female
  Weight: 69 kg

DRUGS (2)
  1. IBRANCE [Suspect]
     Active Substance: PALBOCICLIB
     Dosage: 125 MG, CYCLIC (DAYS 1- 21 Q 28 DAYS)
     Route: 048
     Dates: start: 20190324, end: 20191211
  2. IBRANCE [Suspect]
     Active Substance: PALBOCICLIB
     Indication: BREAST CANCER FEMALE
     Dosage: 125 MG, CYCLIC (DAY 1-21 Q 28 DAYS)
     Route: 048
     Dates: start: 20180324, end: 2018

REACTIONS (6)
  - Lethargy [Unknown]
  - Dizziness [Unknown]
  - Blood glucose decreased [Unknown]
  - Nasopharyngitis [Recovering/Resolving]
  - Visual impairment [Unknown]
  - Fatigue [Unknown]

NARRATIVE: CASE EVENT DATE: 2018
